FAERS Safety Report 11156534 (Version 1)
Quarter: 2015Q2

REPORT INFORMATION
  Report Type: Spontaneous
  Country: US (occurrence: US)
  Receive Date: 20150602
  Receipt Date: 20150602
  Transmission Date: 20150821
  Serious: Yes (Hospitalization)
  Sender: FDA-Public Use
  Company Number: US-PFIZER INC-2015182856

PATIENT
  Age: 44 Year
  Sex: Female
  Weight: 78 kg

DRUGS (3)
  1. LYRICA [Suspect]
     Active Substance: PREGABALIN
     Indication: HERPES ZOSTER
  2. LYRICA [Suspect]
     Active Substance: PREGABALIN
     Indication: LYME DISEASE
  3. LYRICA [Suspect]
     Active Substance: PREGABALIN
     Indication: FIBROMYALGIA
     Dosage: 300 MG, 2X/DAY
     Route: 048

REACTIONS (12)
  - Dyspnoea [Recovering/Resolving]
  - Hypersensitivity [Recovering/Resolving]
  - Headache [Unknown]
  - Prescribed overdose [Not Recovered/Not Resolved]
  - Influenza [Recovering/Resolving]
  - Pharyngeal oedema [Not Recovered/Not Resolved]
  - Paraesthesia [Not Recovered/Not Resolved]
  - Arthritis [Not Recovered/Not Resolved]
  - Narcolepsy [Recovering/Resolving]
  - Drug withdrawal syndrome [Unknown]
  - Drug effect incomplete [Not Recovered/Not Resolved]
  - Memory impairment [Not Recovered/Not Resolved]

NARRATIVE: CASE EVENT DATE: 2013
